FAERS Safety Report 6972219-7 (Version None)
Quarter: 2010Q3

REPORT INFORMATION
  Report Type: 
  Country: None (occurrence: None)
  Receive Date: 20100909
  Receipt Date: 20100902
  Transmission Date: 20110219
  Serious: Yes (Other)
  Sender: FDA-Public Use
  Company Number: SG-BAXTER-2010BH017622

PATIENT
  Age: 66 Year
  Sex: Male

DRUGS (1)
  1. TISSUCOL/TISSEEL KIT STIM3 [Suspect]
     Indication: BRONCHIAL FISTULA REPAIR
     Route: 065
     Dates: start: 20100609, end: 20100609

REACTIONS (1)
  - DRUG INEFFECTIVE [None]
